FAERS Safety Report 14180915 (Version 2)
Quarter: 2017Q4

REPORT INFORMATION
  Report Type: Spontaneous
  Country: KR (occurrence: KR)
  Receive Date: 20171111
  Receipt Date: 20171228
  Transmission Date: 20180321
  Serious: Yes (Hospitalization, Other)
  Sender: FDA-Public Use
  Company Number: KR-SA-2017SA214313

PATIENT
  Age: 50 Year
  Sex: Male

DRUGS (5)
  1. ZOLPIDEM TARTRATE. [Suspect]
     Active Substance: ZOLPIDEM TARTRATE
     Route: 065
  2. FLUNITRAZEPAM [Suspect]
     Active Substance: FLUNITRAZEPAM
     Route: 065
  3. QUETIAPINE FUMARATE. [Suspect]
     Active Substance: QUETIAPINE FUMARATE
     Route: 065
  4. DIAZEPAM. [Suspect]
     Active Substance: DIAZEPAM
     Route: 065
  5. FLURAZEPAM [Suspect]
     Active Substance: FLURAZEPAM\FLURAZEPAM HYDROCHLORIDE
     Route: 065

REACTIONS (7)
  - Sciatic nerve neuropathy [Recovering/Resolving]
  - Paraesthesia [Unknown]
  - Stupor [Recovered/Resolved]
  - Pain in extremity [Unknown]
  - Sciatic nerve injury [Recovering/Resolving]
  - Muscular weakness [Recovering/Resolving]
  - Toxicity to various agents [Recovered/Resolved]
